FAERS Safety Report 9849015 (Version 1)
Quarter: 2014Q1

REPORT INFORMATION
  Report Type: Spontaneous
  Country: BR (occurrence: BR)
  Receive Date: 20140128
  Receipt Date: 20140128
  Transmission Date: 20141002
  Serious: Yes (Hospitalization)
  Sender: FDA-Public Use
  Company Number: BR-GALDERMA-BR14000340

PATIENT
  Age: 0 Day
  Sex: Female
  Weight: 2.4 kg

DRUGS (1)
  1. TRILUMA [Suspect]
     Dosage: 4%-0.05%-0.01%
     Route: 064

REACTIONS (3)
  - Oxygen saturation decreased [Recovered/Resolved]
  - Premature baby [Recovered/Resolved]
  - Exposure during pregnancy [Recovered/Resolved]
